FAERS Safety Report 4655990-9 (Version None)
Quarter: 2005Q2

REPORT INFORMATION
  Report Type: 
  Country: None (occurrence: None)
  Receive Date: 20050505
  Receipt Date: 20050422
  Transmission Date: 20051028
  Serious: Yes (Hospitalization)
  Sender: FDA-Public Use
  Company Number: 2005064898

PATIENT
  Age: 77 Year
  Sex: Male
  Weight: 89 kg

DRUGS (2)
  1. CAMPTOSAR [Suspect]
     Indication: GASTRIC CANCER
     Dosage: (120 MG, CYCLIC), INTRAVENOUS
     Route: 042
     Dates: start: 20050121, end: 20050414
  2. CISPLATIN [Suspect]
     Indication: GASTRIC CANCER
     Dosage: (55 MG, CYCLIC), INTRAVENOUS
     Route: 042
     Dates: start: 20050121, end: 20050414

REACTIONS (6)
  - ANAEMIA [None]
  - ATRIAL FIBRILLATION [None]
  - DIARRHOEA [None]
  - HYPOTENSION [None]
  - ILEUS PARALYTIC [None]
  - NEUTROPENIA [None]
